FAERS Safety Report 11312405 (Version 1)
Quarter: 2015Q3

REPORT INFORMATION
  Report Type: Spontaneous
  Country: US (occurrence: None)
  Receive Date: 20150724
  Receipt Date: 20150724
  Transmission Date: 20151125
  Serious: No
  Sender: FDA-Public Use
  Company Number: None

PATIENT
  Age: 64 Year
  Sex: Female
  Weight: 56.7 kg

DRUGS (6)
  1. FISH OIL [Concomitant]
     Active Substance: FISH OIL
  2. CALCIUM [Concomitant]
     Active Substance: CALCIUM
  3. BILTRICIDE [Suspect]
     Active Substance: PRAZIQUANTEL
     Indication: SCHISTOSOMIASIS
     Route: 048
     Dates: start: 20130923, end: 20130923
  4. BILTRICIDE [Suspect]
     Active Substance: PRAZIQUANTEL
     Indication: FASCIOLIASIS
     Route: 048
     Dates: start: 20130923, end: 20130923
  5. BILTRICIDE [Suspect]
     Active Substance: PRAZIQUANTEL
     Indication: INFECTION PARASITIC
     Route: 048
     Dates: start: 20130923, end: 20130923
  6. VITAMIN C [Concomitant]
     Active Substance: ASCORBIC ACID

REACTIONS (5)
  - Dizziness [None]
  - Impaired work ability [None]
  - Decreased appetite [None]
  - Headache [None]
  - Asthenia [None]

NARRATIVE: CASE EVENT DATE: 20130923
